FAERS Safety Report 10187713 (Version 1)
Quarter: 2014Q2

REPORT INFORMATION
  Report Type: Spontaneous
  Country: US (occurrence: US)
  Receive Date: 20140522
  Receipt Date: 20140522
  Transmission Date: 20141212
  Serious: No
  Sender: FDA-Public Use
  Company Number: US-SANOFI-AVENTIS-2013SA078252

PATIENT
  Age: 56 Year
  Sex: Male

DRUGS (4)
  1. LANTUS SOLOSTAR [Suspect]
     Indication: TYPE 2 DIABETES MELLITUS
     Dosage: TAKEN FROM- 45 DAYS AGO DOSE:30 UNIT(S)
     Route: 051
  2. SOLOSTAR [Concomitant]
     Indication: TYPE 2 DIABETES MELLITUS
     Dosage: TAKEN FROM- 45 DAYS AGO
  3. PIOGLITAZONE [Concomitant]
     Dosage: FOR A COUPLE OF YEARS
     Route: 065
  4. METFORMIN [Concomitant]
     Dosage: FOR A COUPLE OF YEARS
     Route: 065

REACTIONS (5)
  - Urticaria [Recovering/Resolving]
  - Erythema [Recovering/Resolving]
  - Condition aggravated [Recovering/Resolving]
  - Dermatitis contact [Recovering/Resolving]
  - Injection site reaction [Recovering/Resolving]
